FAERS Safety Report 20837053 (Version 1)
Quarter: 2022Q2

REPORT INFORMATION
  Report Type: Spontaneous
  Country: FR (occurrence: FR)
  Receive Date: 20220517
  Receipt Date: 20220517
  Transmission Date: 20220721
  Serious: Yes (Hospitalization)
  Sender: FDA-Public Use
  Company Number: FR-AFSSAPS-GR20220992

PATIENT
  Age: 57 Year
  Sex: Male
  Weight: 51.5 kg

DRUGS (2)
  1. GEMCITABINE [Suspect]
     Active Substance: GEMCITABINE
     Indication: Bladder transitional cell carcinoma
     Dosage: 1000 MILLIGRAM/SQ. METER, 1 CURE ON D1, D8 EVERY 3 WEEKS
     Route: 042
     Dates: start: 20220125
  2. CISPLATIN [Suspect]
     Active Substance: CISPLATIN
     Indication: Bladder transitional cell carcinoma
     Dosage: 35 MILLIGRAM/SQ. METER, 1 CURE ON D1, D8 EVERY 3 WEEKS
     Route: 042
     Dates: start: 20220125

REACTIONS (1)
  - Ischaemic stroke [Recovered/Resolved with Sequelae]

NARRATIVE: CASE EVENT DATE: 20220309
